FAERS Safety Report 11913643 (Version 1)
Quarter: 2016Q1

REPORT INFORMATION
  Report Type: Spontaneous
  Country: US (occurrence: US)
  Receive Date: 20160113
  Receipt Date: 20160113
  Transmission Date: 20160526
  Serious: No
  Sender: FDA-Public Use
  Company Number: US-PFIZER INC-2016000577

PATIENT
  Age: 54 Year
  Sex: Male

DRUGS (11)
  1. ZANAFLEX [Concomitant]
     Active Substance: TIZANIDINE HYDROCHLORIDE
     Dosage: 4 MG, EVERY 8 HOURS AS NEEDED
     Route: 048
  2. LYRICA [Suspect]
     Active Substance: PREGABALIN
     Indication: PAIN
  3. MORPHINE [Concomitant]
     Active Substance: MORPHINE
     Dosage: 15 MG, 3X/DAY
     Route: 048
  4. LYRICA [Suspect]
     Active Substance: PREGABALIN
     Indication: SCIATICA
     Dosage: 200 MG, 2X/DAY
     Route: 048
  5. PERCOCET [Concomitant]
     Active Substance: ACETAMINOPHEN\OXYCODONE HYDROCHLORIDE
     Dosage: [OXYCODONE 10MG]/[ACETAMINOPHEN 325 MG], 1DF, 3X/DAY (AS NEEDED FOR UP TO 14 DAYS)
     Route: 048
  6. NEURONTIN [Concomitant]
     Active Substance: GABAPENTIN
     Dosage: 300 MG, 4X/DAY
     Route: 048
  7. MOTRINI [Concomitant]
     Indication: PAIN
     Dosage: 800 MG, 3X/DAY (AS NEEDED) (TAKE WITH FOOD)
     Route: 048
  8. LEXAPRO [Concomitant]
     Active Substance: ESCITALOPRAM OXALATE
     Dosage: 20 MG, DAILY
     Route: 048
  9. LYRICA [Suspect]
     Active Substance: PREGABALIN
     Indication: RADICULOPATHY
  10. XANAX [Concomitant]
     Active Substance: ALPRAZOLAM
     Dosage: 0.5MG TABLETS BY MOUTH TWO TIMES DAILY AS NEEDED. 1-3 TABLETS DAILY
     Route: 048
  11. NORVASC [Concomitant]
     Active Substance: AMLODIPINE BESYLATE
     Indication: HYPERTENSION
     Dosage: 10 MG, DAILY
     Route: 048

REACTIONS (1)
  - Drug effect incomplete [Unknown]
